FAERS Safety Report 8460101-8 (Version None)
Quarter: 2012Q2

REPORT INFORMATION
  Report Type: 
  Country: None (occurrence: None)
  Receive Date: 20120622
  Receipt Date: 20120612
  Transmission Date: 20120825
  Serious: Yes (Hospitalization)
  Sender: FDA-Public Use
  Company Number: US-ELI_LILLY_AND_COMPANY-US201206004722

PATIENT
  Sex: Female

DRUGS (4)
  1. SYNTHROID [Concomitant]
  2. LEVOTHYROXINE [Concomitant]
  3. HUMULIN 70/30 [Suspect]
     Indication: TYPE 1 DIABETES MELLITUS
     Dosage: 26 U, BID
     Dates: start: 20120501
  4. HUMULIN 70/30 [Suspect]
     Dosage: 26 U, BID

REACTIONS (3)
  - VISUAL IMPAIRMENT [None]
  - BLOOD GLUCOSE INCREASED [None]
  - TREMOR [None]
